FAERS Safety Report 6292299-4 (Version None)
Quarter: 2009Q3

REPORT INFORMATION
  Report Type: 
  Country: None (occurrence: None)
  Receive Date: 20090731
  Receipt Date: 20090727
  Transmission Date: 20100115
  Serious: Yes (Hospitalization)
  Sender: FDA-Public Use
  Company Number: FR-ROCHE-646202

PATIENT
  Age: 75 Year
  Sex: Female

DRUGS (8)
  1. RIVOTRIL [Suspect]
     Indication: SCIATICA
     Route: 065
     Dates: end: 20090701
  2. SERETIDE [Concomitant]
     Indication: ASTHMA
     Route: 065
  3. VIRLIX [Concomitant]
     Indication: ASTHMA
     Route: 065
  4. NASACORT [Concomitant]
     Indication: ASTHMA
     Route: 065
  5. PROZAC [Concomitant]
     Indication: DEPRESSION
     Route: 065
  6. CYMBALTA [Concomitant]
     Indication: DEPRESSION
     Route: 065
  7. SERESTA [Concomitant]
     Indication: DEPRESSION
     Route: 065
  8. DI ANTALVIC [Concomitant]
     Indication: SCIATICA
     Route: 065

REACTIONS (3)
  - COGNITIVE DISORDER [None]
  - HALLUCINATION [None]
  - WITHDRAWAL SYNDROME [None]
